FAERS Safety Report 4714348-4 (Version None)
Quarter: 2005Q3

REPORT INFORMATION
  Report Type: 
  Country: None (occurrence: None)
  Receive Date: 20050712
  Receipt Date: 20040506
  Transmission Date: 20060218
  Serious: Yes (Hospitalization)
  Sender: FDA-Public Use
  Company Number: 206348

PATIENT
  Age: 78 Year
  Sex: Female
  Weight: 59 kg

DRUGS (15)
  1. RITUXIMAB OR PLACEBO (RITUXIMAB OR PLACEBO) CONC FOR SOLUTION FOR INFU [Suspect]
     Indication: RHEUMATOID ARTHRITIS
     Dosage: X2, INTRAVENOUS
     Route: 042
     Dates: start: 20031113, end: 20031127
  2. PREDNISONE [Suspect]
     Indication: RHEUMATOID ARTHRITIS
     Dosage: ORAL
     Route: 048
     Dates: start: 20031114, end: 20031126
  3. METHYLPREDNISOLONE [Suspect]
     Indication: RHEUMATOID ARTHRITIS
     Dosage: MG, X2,  INTRAVENOUS
     Route: 042
     Dates: start: 20031113, end: 20031127
  4. METHOTREXATE [Concomitant]
  5. FOLIC ACID [Concomitant]
  6. PREDNISONE [Concomitant]
  7. EVISTA [Concomitant]
  8. GAVISCON (GASTROINTESTINAL DRUG NOS) [Concomitant]
  9. NEXIUM [Concomitant]
  10. NORVASC [Concomitant]
  11. TIMOLOL MALEATE [Concomitant]
  12. XALATAN [Concomitant]
  13. IBILEX (CEPHALEXIN) [Concomitant]
  14. PANADOL (ACETAMINOPHEN) [Concomitant]
  15. AMPICILLIN [Concomitant]

REACTIONS (3)
  - CYSTITIS [None]
  - PYELONEPHRITIS [None]
  - RENAL CYST [None]
